FAERS Safety Report 9699202 (Version 2)
Quarter: 2013Q4

REPORT INFORMATION
  Report Type: Spontaneous
  Country: US (occurrence: US)
  Receive Date: 20131120
  Receipt Date: 20131120
  Transmission Date: 20140711
  Serious: Yes (Hospitalization)
  Sender: FDA-Public Use
  Company Number: US-GILEAD-2008-0015057

PATIENT
  Sex: Male
  Weight: 60.6 kg

DRUGS (13)
  1. LETAIRIS [Suspect]
     Indication: PULMONARY ARTERIAL HYPERTENSION
     Dates: start: 20071019
  2. REVATIO [Concomitant]
     Route: 048
  3. DILTIAZEM [Concomitant]
     Route: 048
  4. SPIRONOLACTONE [Concomitant]
     Route: 048
  5. COUMADIN [Concomitant]
     Dosage: 5 MG 5DAYS, 7.5MG 2DAYS
     Route: 048
  6. PERSANTINE [Concomitant]
     Route: 048
  7. THEO-24 [Concomitant]
  8. OXYGEN [Concomitant]
  9. FORADIL [Concomitant]
  10. SIMVASTATIN [Concomitant]
  11. MUCINEX [Concomitant]
  12. ALBUTEROL [Concomitant]
     Dosage: 1-2 PUFFS Q4-6HRS PRN
  13. PULMICORT [Concomitant]

REACTIONS (1)
  - Anaemia [Recovered/Resolved]
